FAERS Safety Report 10332614 (Version 2)
Quarter: 2014Q3

REPORT INFORMATION
  Report Type: Spontaneous
  Country: GB (occurrence: GB)
  Receive Date: 20140722
  Receipt Date: 20140822
  Transmission Date: 20150326
  Serious: Yes (Other)
  Sender: FDA-Public Use
  Company Number: GB-GLAXOSMITHKLINE-B1016131A

PATIENT
  Age: 81 Year
  Sex: Male
  Weight: 112 kg

DRUGS (13)
  1. RELVAR ELLIPTA [Suspect]
     Active Substance: FLUTICASONE FUROATE\VILANTEROL TRIFENATATE
     Indication: PRODUCT USED FOR UNKNOWN INDICATION
     Route: 065
     Dates: start: 20140624, end: 20140703
  2. OMEPRAZOLE. [Concomitant]
     Active Substance: OMEPRAZOLE
  3. OXYBUTYNIN [Concomitant]
     Active Substance: OXYBUTYNIN
  4. SALBUTAMOL [Concomitant]
     Active Substance: ALBUTEROL
  5. CANDESARTAN [Concomitant]
     Active Substance: CANDESARTAN
  6. WARFARIN [Concomitant]
     Active Substance: WARFARIN
  7. ISOSORBIDE MONONITRATE EXTENDED RELEASE [Concomitant]
     Active Substance: ISOSORBIDE MONONITRATE
  8. SPIRONOLACTONE. [Concomitant]
     Active Substance: SPIRONOLACTONE
  9. TIOTROPIUM [Concomitant]
     Active Substance: TIOTROPIUM
  10. METFORMIN [Concomitant]
     Active Substance: METFORMIN HYDROCHLORIDE
  11. PRAVASTATIN [Concomitant]
     Active Substance: PRAVASTATIN\PRAVASTATIN SODIUM
  12. NICORANDIL [Concomitant]
     Active Substance: NICORANDIL
  13. GLICLAZIDE [Concomitant]
     Active Substance: GLICLAZIDE

REACTIONS (2)
  - Exercise tolerance increased [Unknown]
  - Angina pectoris [Recovered/Resolved]

NARRATIVE: CASE EVENT DATE: 20140703
